FAERS Safety Report 14008672 (Version 1)
Quarter: 2017Q3

REPORT INFORMATION
  Report Type: Spontaneous
  Country: US (occurrence: US)
  Receive Date: 20170925
  Receipt Date: 20170925
  Transmission Date: 20171128
  Serious: No
  Sender: FDA-Public Use
  Company Number: US-OREXO US, INC.-ORE201703-000030

PATIENT
  Sex: Male

DRUGS (2)
  1. ZUBSOLV [Suspect]
     Active Substance: BUPRENORPHINE HYDROCHLORIDE\NALOXONE HYDROCHLORIDE
     Indication: NECK PAIN
     Dosage: TAKES FIVE POINT SOMETHING MILLIGRAMS
     Dates: start: 201611
  2. ZUBSOLV [Suspect]
     Active Substance: BUPRENORPHINE HYDROCHLORIDE\NALOXONE HYDROCHLORIDE
     Indication: HERPES ZOSTER

REACTIONS (3)
  - Off label use [Unknown]
  - Headache [Unknown]
  - Malaise [Unknown]
